FAERS Safety Report 7969162-3 (Version None)
Quarter: 2011Q4

REPORT INFORMATION
  Report Type: 
  Country: None (occurrence: None)
  Receive Date: 20111208
  Receipt Date: 20111128
  Transmission Date: 20120403
  Serious: Yes (Other)
  Sender: FDA-Public Use
  Company Number: 2011P1012261

PATIENT
  Sex: Male

DRUGS (1)
  1. ISONIAZID [Suspect]

REACTIONS (2)
  - ASTHENIA [None]
  - BLADDER CANCER [None]
